FAERS Safety Report 8237406-9 (Version None)
Quarter: 2012Q1

REPORT INFORMATION
  Report Type: 
  Country: None (occurrence: None)
  Receive Date: 20120327
  Receipt Date: 20120316
  Transmission Date: 20120608
  Serious: Yes (Other)
  Sender: FDA-Public Use
  Company Number: JP-ELI_LILLY_AND_COMPANY-JP201203005863

PATIENT
  Sex: Male
  Weight: 62 kg

DRUGS (14)
  1. ALIMTA [Suspect]
     Indication: LUNG CARCINOMA CELL TYPE UNSPECIFIED STAGE IV
     Dosage: 800 MG, OTHER
     Route: 042
     Dates: start: 20100820, end: 20100910
  2. MORPHINE SULFATE [Concomitant]
     Dosage: UNK
     Dates: start: 20100917
  3. ACETAMINOPHEN [Concomitant]
     Dosage: UNK
     Dates: start: 20100924
  4. GARENOXACIN MESYLATE [Concomitant]
     Dosage: UNK
     Dates: start: 20100929
  5. KINEDAK [Concomitant]
     Dosage: UNK
     Dates: start: 20100917
  6. PURSENNID [Concomitant]
     Dosage: UNK
     Dates: start: 20100918
  7. AMOBAN [Concomitant]
     Dosage: UNK
     Dates: start: 20100810
  8. ROHYPNOL [Concomitant]
     Dosage: UNK
     Dates: start: 20100827
  9. METHYCOBAL [Concomitant]
     Dosage: UNK
     Dates: start: 20100901
  10. GABAPENTIN [Concomitant]
     Dosage: UNK
     Dates: start: 20100915
  11. OXINORM                            /00045603/ [Concomitant]
     Dosage: UNK
     Dates: start: 20100918
  12. AMLODIPINE [Concomitant]
     Dosage: UNK
     Dates: start: 20100924
  13. PANVITAN [Concomitant]
     Dosage: UNK
     Dates: start: 20100810
  14. LOXONIN [Concomitant]
     Dosage: UNK
     Dates: start: 20100927

REACTIONS (1)
  - LUNG DISORDER [None]
